FAERS Safety Report 10672215 (Version 1)
Quarter: 2014Q4

REPORT INFORMATION
  Report Type: Report from Study
  Country: US (occurrence: US)
  Receive Date: 20141223
  Receipt Date: 20141223
  Transmission Date: 20150529
  Serious: Yes (Other)
  Sender: FDA-Public Use
  Company Number: US-ARIAD-2014US004258

PATIENT

DRUGS (1)
  1. PONATINIB [Suspect]
     Active Substance: PONATINIB
     Indication: CHRONIC MYELOID LEUKAEMIA
     Dosage: 15 MG, QOD
     Route: 048
     Dates: start: 201207

REACTIONS (6)
  - Myocardial infarction [Unknown]
  - Arthritis [Unknown]
  - Blood pressure inadequately controlled [Unknown]
  - Abdominal pain upper [Unknown]
  - Vision blurred [Recovered/Resolved]
  - Polycythaemia [Unknown]
